FAERS Safety Report 6213458-2 (Version None)
Quarter: 2009Q2

REPORT INFORMATION
  Report Type: 
  Country: None (occurrence: None)
  Receive Date: 20090603
  Receipt Date: 20090529
  Transmission Date: 20091009
  Serious: Yes (Other)
  Sender: FDA-Public Use
  Company Number: GB-ABBOTT-09P-167-0576691-00

PATIENT
  Age: 30 Year
  Sex: Female
  Weight: 88 kg

DRUGS (3)
  1. REDUCTIL 15MG [Suspect]
     Indication: OBESITY
     Dates: start: 20090223
  2. REDUCTIL 15MG [Suspect]
     Dates: start: 20090330
  3. DEPO-PROVERA [Concomitant]
     Indication: CONTRACEPTION

REACTIONS (2)
  - DEPRESSION [None]
  - SELF-INJURIOUS IDEATION [None]
